FAERS Safety Report 5483966-0 (Version None)
Quarter: 2007Q4

REPORT INFORMATION
  Report Type: 
  Country: None (occurrence: None)
  Receive Date: 20071012
  Receipt Date: 20071002
  Transmission Date: 20080405
  Serious: Yes (Other)
  Sender: FDA-Public Use
  Company Number: GR-ROCHE-523020

PATIENT
  Age: 50 Year
  Sex: Female

DRUGS (2)
  1. BONIVA [Suspect]
     Indication: OSTEOPOROSIS
     Dosage: FORM: F.C TABLETS
     Route: 048
     Dates: start: 20070201, end: 20070401
  2. ANTI-INFLAMMATORY THERAPY [Concomitant]
     Dosage: DRUG: ANTI-INFLAMMATORY THERAPY NOS.

REACTIONS (2)
  - OESOPHAGITIS [None]
  - PARATRACHEAL LYMPHADENOPATHY [None]
